FAERS Safety Report 9173660 (Version 2)
Quarter: 2013Q2

REPORT INFORMATION
  Report Type: Spontaneous
  Country: BE (occurrence: None)
  Receive Date: 20130314
  Receipt Date: 20130626
  Transmission Date: 20140414
  Serious: Yes (Hospitalization, Other)
  Sender: FDA-Public Use
  Company Number: JPI-P-026614

PATIENT
  Age: 36 Year
  Sex: Female

DRUGS (2)
  1. XYREM [Suspect]
     Indication: NARCOLEPSY
     Dosage: (4.5 GM,2 IN 1 D)
     Route: 048
     Dates: start: 20120528
  2. MODAFINIL [Concomitant]

REACTIONS (6)
  - Pregnancy [None]
  - Vaginal haemorrhage [None]
  - Exposure during pregnancy [None]
  - Caesarean section [None]
  - Breech presentation [None]
  - Premature separation of placenta [None]
